FAERS Safety Report 5399870-2 (Version None)
Quarter: 2007Q3

REPORT INFORMATION
  Report Type: 
  Country: None (occurrence: None)
  Receive Date: 20070730
  Receipt Date: 20070727
  Transmission Date: 20080115
  Serious: Yes (Life-Threatening)
  Sender: FDA-Public Use
  Company Number: PHNU2007DE02677

PATIENT
  Age: 57 Year
  Sex: Male
  Weight: 76 kg

DRUGS (1)
  1. VOLTAREN [Suspect]
     Indication: OEDEMA PERIPHERAL
     Dosage: 1 DF, ONCE/SINGLE
     Route: 061
     Dates: start: 20070629

REACTIONS (5)
  - ERYTHEMA [None]
  - PURULENCE [None]
  - RASH [None]
  - SECRETION DISCHARGE [None]
  - SKIN DISCOLOURATION [None]
